FAERS Safety Report 4600254-2 (Version None)
Quarter: 2005Q1

REPORT INFORMATION
  Report Type: 
  Country: None (occurrence: None)
  Receive Date: 20050303
  Receipt Date: 20050225
  Transmission Date: 20050727
  Serious: Yes (Death, Hospitalization, Other)
  Sender: FDA-Public Use
  Company Number: PL-2005-001628

PATIENT
  Age: 58 Year
  Sex: Female
  Weight: 63 kg

DRUGS (6)
  1. FLUDARA [Suspect]
     Indication: LEUKAEMIA
     Dates: end: 20041201
  2. NYSTATIN [Concomitant]
  3. PLATELETS [Concomitant]
  4. ETAMSILATE (ETAMSILATE) [Concomitant]
  5. BACTRIM [Concomitant]
  6. ACYCLOVIR [Concomitant]

REACTIONS (8)
  - AUTOIMMUNE THROMBOCYTOPENIA [None]
  - BONE MARROW LEUKAEMIC CELL INFILTRATION [None]
  - CHRONIC LYMPHOCYTIC LEUKAEMIA [None]
  - DISEASE PROGRESSION [None]
  - IMMUNOSUPPRESSION [None]
  - INTERSTITIAL LUNG DISEASE [None]
  - SEPTIC SHOCK [None]
  - VIRAL INFECTION [None]
